FAERS Safety Report 14817445 (Version 2)
Quarter: 2018Q2

REPORT INFORMATION
  Report Type: Spontaneous
  Country: US (occurrence: US)
  Receive Date: 20180426
  Receipt Date: 20180619
  Transmission Date: 20180711
  Serious: No
  Sender: FDA-Public Use
  Company Number: US-009507513-1804USA009460

PATIENT
  Age: 17 Year
  Sex: Female
  Weight: 72.74 kg

DRUGS (3)
  1. NEXPLANON [Suspect]
     Active Substance: ETONOGESTREL
     Dosage: 1 DF, UNK
     Route: 059
     Dates: start: 20180418
  2. NEXPLANON [Suspect]
     Active Substance: ETONOGESTREL
     Dosage: 1 ROD EVERY 3 YEARS
     Route: 058
     Dates: start: 20180418, end: 20180418
  3. ETHINYL ESTRADIOL (+) FERROUS FUMARATE (+) NORETHINDRONE ACETATE [Concomitant]
     Dosage: 1 MG-20 MCG /75 MG (24/4) CAPSULE, 1 CAPSULE EVERY DAY
     Route: 048

REACTIONS (3)
  - Product quality issue [Unknown]
  - No adverse event [Unknown]
  - Complication of device insertion [Recovered/Resolved]

NARRATIVE: CASE EVENT DATE: 20180418
